FAERS Safety Report 23771238 (Version 5)
Quarter: 2024Q3

REPORT INFORMATION
  Report Type: Report from Study
  Country: US (occurrence: US)
  Receive Date: 20240423
  Receipt Date: 20240924
  Transmission Date: 20241017
  Serious: Yes (Other)
  Sender: EMD SERONO INC
  Company Number: US-Merck Healthcare KGaA-2024020195

PATIENT
  Age: 67 Year
  Sex: Female

DRUGS (1)
  1. MAVENCLAD [Suspect]
     Active Substance: CLADRIBINE
     Indication: Multiple sclerosis
     Dosage: YEAR ONE MONTH ONE THERAPY
     Route: 048
     Dates: start: 20240405

REACTIONS (15)
  - White blood cell count decreased [Recovered/Resolved]
  - Lymphocyte count decreased [Unknown]
  - Monocyte count decreased [Unknown]
  - Pharyngitis streptococcal [Unknown]
  - Neutrophil count decreased [Unknown]
  - Oral herpes [Not Recovered/Not Resolved]
  - Pain [Recovered/Resolved]
  - Dizziness [Not Recovered/Not Resolved]
  - Balance disorder [Recovering/Resolving]
  - Hunger [Not Recovered/Not Resolved]
  - Tremor [Unknown]
  - Decreased appetite [Unknown]
  - Blood glucose fluctuation [Unknown]
  - Blood glucose increased [Unknown]
  - Blood urine present [Unknown]

NARRATIVE: CASE EVENT DATE: 20240410
